FAERS Safety Report 23048993 (Version 2)
Quarter: 2023Q4

REPORT INFORMATION
  Report Type: Other
  Country: FR (occurrence: FR)
  Receive Date: 20231010
  Receipt Date: 20231013
  Transmission Date: 20240110
  Serious: Yes (Other)
  Sender: FDA-Public Use
  Company Number: None

PATIENT
  Age: 32 Year
  Sex: Male

DRUGS (2)
  1. PROGRAF [Interacting]
     Active Substance: TACROLIMUS
     Indication: Heart transplant
     Route: 048
     Dates: end: 20230925
  2. FLUCONAZOLE [Interacting]
     Active Substance: FLUCONAZOLE
     Indication: Mediastinitis
     Dosage: 400 MG, ONCE DAILY (24 HOURS)
     Route: 042
     Dates: start: 20230921

REACTIONS (2)
  - Immunosuppressant drug level increased [Not Recovered/Not Resolved]
  - Drug interaction [Unknown]

NARRATIVE: CASE EVENT DATE: 20230925
